FAERS Safety Report 15616267 (Version 2)
Quarter: 2019Q2

REPORT INFORMATION
  Report Type: Spontaneous
  Country: US (occurrence: US)
  Receive Date: 20181114
  Receipt Date: 20190628
  Transmission Date: 20190711
  Serious: No
  Sender: FDA-Public Use
  Company Number: US-PFIZER INC-2015373650

PATIENT
  Age: 70 Year
  Sex: Female

DRUGS (53)
  1. LYRICA [Suspect]
     Active Substance: PREGABALIN
     Indication: STENOSIS
     Dosage: 75 MG, 3X/DAY
     Dates: start: 20151028
  2. LYRICA [Suspect]
     Active Substance: PREGABALIN
     Indication: INTERVERTEBRAL DISC DISPLACEMENT
     Dosage: 75 MG, 3X/DAY
  3. LYRICA [Suspect]
     Active Substance: PREGABALIN
     Indication: POST LAMINECTOMY SYNDROME
  4. CELEBREX [Concomitant]
     Active Substance: CELECOXIB
     Dosage: 200 MG, DAILY
  5. LYRICA [Suspect]
     Active Substance: PREGABALIN
     Indication: INTERVERTEBRAL DISC DISORDER
  6. LYRICA [Suspect]
     Active Substance: PREGABALIN
     Indication: ATAXIA
  7. LYRICA [Suspect]
     Active Substance: PREGABALIN
     Indication: SPEECH DISORDER
  8. SENNA LAXATIVE [Concomitant]
     Active Substance: SENNOSIDES
     Dosage: UNK, AS NEEDED (2-4 LABLETS TAKE 1 TWO TIMES A DAY)
  9. CELEXA [Concomitant]
     Active Substance: CITALOPRAM HYDROBROMIDE
     Dosage: 40 MG, DAILY
  10. LYRICA [Suspect]
     Active Substance: PREGABALIN
     Indication: MENTAL DISORDER
  11. LYRICA [Suspect]
     Active Substance: PREGABALIN
     Indication: THORACIC RADICULOPATHY
  12. LYRICA [Suspect]
     Active Substance: PREGABALIN
     Indication: INTERVERTEBRAL DISC DEGENERATION
  13. LYRICA [Suspect]
     Active Substance: PREGABALIN
     Indication: NEURALGIA
  14. AMBIEN [Concomitant]
     Active Substance: ZOLPIDEM TARTRATE
     Dosage: 10 MG, 1X/DAY (TAKE 2 AT BEDTIME)
  15. POLYETHYLENE GLYCOL 3350. [Concomitant]
     Active Substance: POLYETHYLENE GLYCOL 3350
     Dosage: UNK, AS NEEDED
  16. VITAMIN B12 [COBAMAMIDE] [Concomitant]
     Dosage: 2500 UG, DAILY
  17. LYRICA [Suspect]
     Active Substance: PREGABALIN
     Indication: PELVIC PAIN
  18. CYCLOBENZAPRINE. [Concomitant]
     Active Substance: CYCLOBENZAPRINE
     Dosage: 10 MG, AS NEEDED (THREE TIMES A DAY)
  19. LYRICA [Suspect]
     Active Substance: PREGABALIN
     Indication: PAIN
     Dosage: 75 MG, 3X/DAY
     Dates: start: 20160201
  20. LYRICA [Suspect]
     Active Substance: PREGABALIN
     Indication: SOMATIC SYMPTOM DISORDER
  21. LYRICA [Suspect]
     Active Substance: PREGABALIN
     Indication: SOMATIC SYMPTOM DISORDER
  22. LYRICA [Suspect]
     Active Substance: PREGABALIN
     Indication: PAIN IN EXTREMITY
  23. LYRICA [Suspect]
     Active Substance: PREGABALIN
     Indication: EMBOLISM VENOUS
  24. LYRICA [Suspect]
     Active Substance: PREGABALIN
     Indication: BACK PAIN
  25. LYRICA [Suspect]
     Active Substance: PREGABALIN
     Indication: CERVICAL RADICULOPATHY
  26. METOPROLOL. [Concomitant]
     Active Substance: METOPROLOL
     Dosage: 25 MG, 2X/DAY
  27. EVZIO [Concomitant]
     Active Substance: NALOXONE HYDROCHLORIDE
     Indication: ANALGESIC THERAPY
     Dosage: UNK
  28. MS CONTIN [Concomitant]
     Active Substance: MORPHINE SULFATE
     Dosage: UNK, 2X/DAY (Q 12 HOURS )
  29. LYRICA [Suspect]
     Active Substance: PREGABALIN
     Indication: DRUG ABUSE
  30. LYRICA [Suspect]
     Active Substance: PREGABALIN
     Indication: DEPRESSION
  31. LYRICA [Suspect]
     Active Substance: PREGABALIN
     Indication: OSTEOARTHRITIS
  32. LYRICA [Suspect]
     Active Substance: PREGABALIN
     Indication: JOINT INJURY
  33. ASPIRIN [ACETYLSALICYLIC ACID] [Concomitant]
     Active Substance: ASPIRIN
     Dosage: 162 MG, DAILY ( TAKE 2 DAILY)
  34. PROAIR HFA [Concomitant]
     Active Substance: ALBUTEROL SULFATE
     Dosage: UNK, AS NEEDED (PRN)
     Route: 055
  35. VITAMIN D2 [Concomitant]
     Active Substance: ERGOCALCIFEROL
     Dosage: 50000 IU, WEEKLY
  36. LYRICA [Suspect]
     Active Substance: PREGABALIN
     Indication: SPINAL OSTEOARTHRITIS
  37. LYRICA [Suspect]
     Active Substance: PREGABALIN
     Indication: PSYCHOLOGICAL FACTOR AFFECTING MEDICAL CONDITION
  38. LYRICA [Suspect]
     Active Substance: PREGABALIN
     Indication: SPONDYLOLISTHESIS
  39. LYRICA [Suspect]
     Active Substance: PREGABALIN
     Indication: OSTEOARTHRITIS
  40. OXYCODONE HYDROCHLORIDE. [Concomitant]
     Active Substance: OXYCODONE HYDROCHLORIDE
     Dosage: 10 MG, AS NEEDED (1 TABLET 4 X DALLY)
  41. CELEXA [Concomitant]
     Active Substance: CITALOPRAM HYDROBROMIDE
     Dosage: 20 MG, DAILY
  42. DOK [Concomitant]
     Active Substance: DOCUSATE SODIUM
     Dosage: 100 MG, 2X/DAY
  43. LYRICA [Suspect]
     Active Substance: PREGABALIN
     Indication: RADICULOPATHY
     Dosage: 75 MG, 2X/DAY
     Dates: start: 20160525
  44. LYRICA [Suspect]
     Active Substance: PREGABALIN
     Indication: LUMBAR SPINAL STENOSIS
  45. LYRICA [Suspect]
     Active Substance: PREGABALIN
     Indication: POST LAMINECTOMY SYNDROME
  46. LYRICA [Suspect]
     Active Substance: PREGABALIN
     Indication: NECK PAIN
  47. LYRICA [Suspect]
     Active Substance: PREGABALIN
     Indication: INTERVERTEBRAL DISC DEGENERATION
  48. LYRICA [Suspect]
     Active Substance: PREGABALIN
     Indication: LIMB INJURY
  49. LYRICA [Suspect]
     Active Substance: PREGABALIN
     Indication: MYOFASCIAL PAIN SYNDROME
  50. LYRICA [Suspect]
     Active Substance: PREGABALIN
     Indication: COORDINATION ABNORMAL
  51. LYRICA [Suspect]
     Active Substance: PREGABALIN
     Indication: ARTHRALGIA
  52. ESTRADIOL. [Concomitant]
     Active Substance: ESTRADIOL
     Dosage: 0.5 MG, DAILY
  53. MORPHINE SULFATE. [Concomitant]
     Active Substance: MORPHINE SULFATE
     Dosage: UNK, AS NEEDED (BID)

REACTIONS (1)
  - Withdrawal syndrome [Unknown]
